FAERS Safety Report 5116087-7 (Version None)
Quarter: 2006Q3

REPORT INFORMATION
  Report Type: 
  Country: None (occurrence: None)
  Receive Date: 20060927
  Receipt Date: 20060420
  Transmission Date: 20061208
  Serious: No
  Sender: FDA-Public Use
  Company Number: US-BRISTOL-MYERS SQUIBB COMPANY-13353578

PATIENT
  Sex: Male

DRUGS (2)
  1. DEFINITY [Suspect]
     Dates: start: 20060420
  2. MORPHINE [Concomitant]

REACTIONS (2)
  - SWELLING FACE [None]
  - URTICARIA [None]
